FAERS Safety Report 5701277-2 (Version None)
Quarter: 2008Q2

REPORT INFORMATION
  Report Type: 
  Country: None (occurrence: None)
  Receive Date: 20080407
  Receipt Date: 20080327
  Transmission Date: 20081010
  Serious: Yes (Life-Threatening)
  Sender: FDA-Public Use
  Company Number: GXKR2008GB03003

PATIENT
  Age: 73 Year
  Sex: Male
  Weight: 60 kg

DRUGS (7)
  1. ACETYLSALICYLIC ACID (NGX)(ACTYLSALICYLIC ACID) UNKNOWN [Suspect]
     Indication: CARDIOVASCULAR DISORDER
     Dosage: 75 MG, QD, ORAL
     Route: 048
  2. CITALOPRAM HYDROBROMIDE [Suspect]
     Indication: DEPRESSION
     Dosage: 20 MG, ORAL
     Route: 048
  3. GABAPENTIN [Concomitant]
  4. LEVOTHYROXINE (LEVOTHYROXINE (LEVOTHYROXINE) [Concomitant]
  5. OMEPRAZOLE [Concomitant]
  6. SIMVASTATIN [Concomitant]
  7. TOLTERODINE TARTRATE [Concomitant]

REACTIONS (2)
  - GASTROINTESTINAL HAEMORRHAGE [None]
  - OESOPHAGEAL ULCER [None]
